FAERS Safety Report 6843102-2 (Version None)
Quarter: 2010Q3

REPORT INFORMATION
  Report Type: 
  Country: None (occurrence: None)
  Receive Date: 20100715
  Receipt Date: 20100705
  Transmission Date: 20110219
  Serious: Yes (Other)
  Sender: FDA-Public Use
  Company Number: JP-BIOGENIDEC-2010BI022987

PATIENT
  Age: 62 Year
  Sex: Female

DRUGS (3)
  1. TYSABRI [Suspect]
     Indication: MULTIPLE SCLEROSIS
     Dates: start: 20100413, end: 20100511
  2. ALFACALCIDOL [Concomitant]
     Dates: start: 20051128
  3. LEVOTHYROXINE SODIUM [Concomitant]
     Dates: start: 20010101

REACTIONS (2)
  - MULTIPLE SCLEROSIS RELAPSE [None]
  - RETINAL DETACHMENT [None]
